FAERS Safety Report 7694103-6 (Version None)
Quarter: 2011Q3

REPORT INFORMATION
  Report Type: 
  Country: None (occurrence: None)
  Receive Date: 20110819
  Receipt Date: 20110811
  Transmission Date: 20111222
  Serious: Yes (Other)
  Sender: FDA-Public Use
  Company Number: FR-GENZYME-THYM-1002498

PATIENT
  Age: 27 Year
  Sex: Male

DRUGS (7)
  1. MYCOPHENOLATE MOFETIL [Concomitant]
     Indication: PROPHYLAXIS AGAINST TRANSPLANT REJECTION
     Dosage: 2 G, QD
     Route: 065
  2. TACROLIMUS [Concomitant]
     Indication: PROPHYLAXIS AGAINST TRANSPLANT REJECTION
     Route: 065
  3. THYMOGLOBULIN [Suspect]
     Indication: PROPHYLAXIS AGAINST TRANSPLANT REJECTION
     Dosage: 1.25 MG/KG, QD
     Route: 042
  4. PREDNISOLONE [Concomitant]
     Dosage: 1 MG/KG, QD
     Route: 065
  5. PREDNISOLONE [Concomitant]
     Dosage: 10 MG, QD
     Route: 065
  6. BACTRIM [Concomitant]
     Indication: ANTIFUNGAL PROPHYLAXIS
     Route: 065
  7. PREDNISOLONE [Concomitant]
     Indication: PROPHYLAXIS AGAINST TRANSPLANT REJECTION
     Dosage: 250 MG/KG, ONCE
     Route: 065

REACTIONS (8)
  - WOUND DEHISCENCE [None]
  - IMPAIRED HEALING [None]
  - EPSTEIN-BARR VIRUS INFECTION [None]
  - STAPHYLOCOCCAL INFECTION [None]
  - HERPES SIMPLEX [None]
  - LYMPHOMA [None]
  - TRANSPLANT REJECTION [None]
  - ORAL CANDIDIASIS [None]
